FAERS Safety Report 18833373 (Version 1)
Quarter: 2021Q1

REPORT INFORMATION
  Report Type: Spontaneous
  Country: US (occurrence: US)
  Receive Date: 20210203
  Receipt Date: 20210203
  Transmission Date: 20210419
  Serious: No
  Sender: FDA-Public Use
  Company Number: US-IPSEN BIOPHARMACEUTICALS, INC.-2021-02442

PATIENT
  Age: 66 Year
  Sex: Female

DRUGS (1)
  1. DYSPORT [Suspect]
     Active Substance: ABOBOTULINUMTOXINA
     Indication: SKIN WRINKLING
     Dosage: DOSE NOT REPORTED (BETWEEN THE EYEBROWS)
     Route: 065
     Dates: start: 20210112, end: 20210112

REACTIONS (5)
  - Micturition urgency [Recovered/Resolved]
  - Cystitis [Unknown]
  - Pain [Not Recovered/Not Resolved]
  - Dysuria [Recovered/Resolved]
  - Tinnitus [Recovered/Resolved]

NARRATIVE: CASE EVENT DATE: 202101
